FAERS Safety Report 6156252-3 (Version None)
Quarter: 2009Q2

REPORT INFORMATION
  Report Type: 
  Country: None (occurrence: None)
  Receive Date: 20090415
  Receipt Date: 20090406
  Transmission Date: 20091009
  Serious: Yes (Hospitalization)
  Sender: FDA-Public Use
  Company Number: BE-ABBOTT-08P-013-0479441-00

PATIENT
  Sex: Female
  Weight: 42 kg

DRUGS (6)
  1. HUMIRA [Suspect]
     Indication: CROHN'S DISEASE
     Route: 058
     Dates: start: 20080516
  2. OMEPRAZOLE [Concomitant]
     Indication: GASTRITIS
     Dates: start: 20080401
  3. ENTOCORT EC [Concomitant]
     Indication: CROHN'S DISEASE
     Dates: start: 20050601
  4. LORAZEPAM [Concomitant]
     Indication: INSOMNIA
  5. DAFALGAN [Concomitant]
     Indication: ARTHRALGIA
     Dates: start: 20080701
  6. SPIRIVA [Concomitant]
     Indication: EMPHYSEMA
     Dates: start: 20080101

REACTIONS (1)
  - GASTRITIS [None]
